FAERS Safety Report 24388164 (Version 1)
Quarter: 2024Q4

REPORT INFORMATION
  Report Type: Spontaneous
  Country: AT (occurrence: AT)
  Receive Date: 20241002
  Receipt Date: 20241002
  Transmission Date: 20250115
  Serious: Yes (Other)
  Sender: DUCHESNAY
  Company Number: AT-EXELTIS PHARMACEUTICAL HOLDING, S.L.-2409AT07447

PATIENT

DRUGS (1)
  1. DOXYLAMINE SUCCINATE\PYRIDOXINE HYDROCHLORIDE [Suspect]
     Active Substance: DOXYLAMINE SUCCINATE\PYRIDOXINE HYDROCHLORIDE
     Indication: Morning sickness

REACTIONS (4)
  - Dependence [Unknown]
  - Food craving [Unknown]
  - Alkalosis [Unknown]
  - Vitamin D decreased [Unknown]
